FAERS Safety Report 16190985 (Version 2)
Quarter: 2019Q2

REPORT INFORMATION
  Report Type: Spontaneous
  Country: US (occurrence: US)
  Receive Date: 20190412
  Receipt Date: 20190604
  Transmission Date: 20190711
  Serious: Yes (Life-Threatening, Hospitalization)
  Sender: FDA-Public Use
  Company Number: US-BAYER-2019-071429

PATIENT
  Age: 13 Year
  Sex: Female

DRUGS (1)
  1. ACETYLSALICYLIC ACID (PAIN AND FEVER) [Suspect]
     Active Substance: ASPIRIN

REACTIONS (4)
  - Compartment syndrome [None]
  - Intentional overdose [None]
  - Rhabdomyolysis [None]
  - Toxicity to various agents [None]
